FAERS Safety Report 6629920-4 (Version None)
Quarter: 2010Q1

REPORT INFORMATION
  Report Type: 
  Country: None (occurrence: None)
  Receive Date: 20100311
  Receipt Date: 20090710
  Transmission Date: 20100710
  Serious: No
  Sender: FDA-Public Use
  Company Number: US-BIOGENIDEC-2009BI021273

PATIENT
  Sex: Male

DRUGS (4)
  1. AVONEX [Suspect]
     Indication: MULTIPLE SCLEROSIS
     Route: 030
     Dates: start: 20061201
  2. PROVIGIL [Concomitant]
     Indication: FATIGUE
  3. BACLOFEN [Concomitant]
     Indication: HYPOAESTHESIA
  4. BACLOFEN [Concomitant]
     Indication: MUSCLE SPASMS

REACTIONS (5)
  - DENTAL CARIES [None]
  - FATIGUE [None]
  - HYPOAESTHESIA [None]
  - MULTIPLE SCLEROSIS [None]
  - MUSCLE SPASMS [None]
